FAERS Safety Report 23682082 (Version 1)
Quarter: 2024Q1

REPORT INFORMATION
  Report Type: Spontaneous
  Country: JP (occurrence: JP)
  Receive Date: 20240328
  Receipt Date: 20240328
  Transmission Date: 20240410
  Serious: Yes (Other)
  Sender: FDA-Public Use
  Company Number: JP-AMGEN-JPNSP2024061929

PATIENT

DRUGS (1)
  1. EVENITY [Suspect]
     Active Substance: ROMOSOZUMAB-AQQG
     Indication: Osteoporosis
     Dosage: 210 MILLIGRAM, QMO
     Route: 058

REACTIONS (6)
  - Loss of consciousness [Unknown]
  - Embolism [Unknown]
  - Angina pectoris [Unknown]
  - Myocardial infarction [Unknown]
  - Cardiac failure [Unknown]
  - Cerebrovascular accident [Unknown]
